FAERS Safety Report 6137463-X (Version None)
Quarter: 2009Q1

REPORT INFORMATION
  Report Type: 
  Country: None (occurrence: None)
  Receive Date: 20090326
  Receipt Date: 20090317
  Transmission Date: 20090719
  Serious: Yes (Other)
  Sender: FDA-Public Use
  Company Number: IMP_04305_2009

PATIENT

DRUGS (1)
  1. BUPROPION HCL [Suspect]
     Indication: DRUG USE FOR UNKNOWN INDICATION
     Dosage: 150 MG

REACTIONS (6)
  - CATATONIA [None]
  - CONVULSION [None]
  - HEART RATE INCREASED [None]
  - MUSCLE SPASMS [None]
  - PARAESTHESIA [None]
  - SYNCOPE [None]
